FAERS Safety Report 21017950 (Version 1)
Quarter: 2022Q2

REPORT INFORMATION
  Report Type: Spontaneous
  Country: CH (occurrence: CH)
  Receive Date: 20220628
  Receipt Date: 20220628
  Transmission Date: 20220720
  Serious: Yes (Other)
  Sender: FDA-Public Use
  Company Number: None

PATIENT
  Sex: Female

DRUGS (15)
  1. MEDROL [Suspect]
     Active Substance: METHYLPREDNISOLONE
     Dosage: 32 MG
     Dates: start: 20210212, end: 20210328
  2. MEDROL [Suspect]
     Active Substance: METHYLPREDNISOLONE
     Dosage: 24 MG
     Dates: start: 20210329, end: 20210423
  3. MEDROL [Suspect]
     Active Substance: METHYLPREDNISOLONE
     Dosage: 22 MG
     Dates: start: 20210424, end: 20210507
  4. MEDROL [Suspect]
     Active Substance: METHYLPREDNISOLONE
     Dosage: 20 MG
     Dates: start: 20210508, end: 20210521
  5. MEDROL [Suspect]
     Active Substance: METHYLPREDNISOLONE
     Dosage: 18 MG
     Dates: start: 20210522, end: 20210604
  6. MEDROL [Suspect]
     Active Substance: METHYLPREDNISOLONE
     Dosage: 16 MG
     Dates: start: 20210605, end: 20210612
  7. MEDROL [Suspect]
     Active Substance: METHYLPREDNISOLONE
     Dosage: 14 MG
     Dates: start: 20210613, end: 20210618
  8. MEDROL [Suspect]
     Active Substance: METHYLPREDNISOLONE
     Dosage: 12 MG
     Dates: start: 20210619, end: 20210702
  9. MEDROL [Suspect]
     Active Substance: METHYLPREDNISOLONE
     Dosage: 10 MG
     Dates: start: 20210703, end: 20210716
  10. MEDROL [Suspect]
     Active Substance: METHYLPREDNISOLONE
     Dosage: 8 MG
     Dates: start: 20210717, end: 20210731
  11. MEDROL [Suspect]
     Active Substance: METHYLPREDNISOLONE
     Dosage: 6 MG
     Dates: start: 20210801, end: 20210814
  12. MEDROL [Suspect]
     Active Substance: METHYLPREDNISOLONE
     Dosage: 4 MG
     Dates: start: 20210815, end: 20210831
  13. MEDROL [Suspect]
     Active Substance: METHYLPREDNISOLONE
     Dosage: 2 MG
     Dates: start: 20210901, end: 20210922
  14. METHOTREXATE SODIUM [Suspect]
     Active Substance: METHOTREXATE SODIUM
     Dosage: 15 MG
     Dates: start: 20220223, end: 20220302
  15. METHOTREXATE SODIUM [Suspect]
     Active Substance: METHOTREXATE SODIUM
     Dosage: 20 MG
     Dates: start: 20220309, end: 20220601

REACTIONS (1)
  - Visual impairment [Not Recovered/Not Resolved]

NARRATIVE: CASE EVENT DATE: 20220331
